FAERS Safety Report 24966339 (Version 1)
Quarter: 2025Q1

REPORT INFORMATION
  Report Type: Report from Study
  Country: IT (occurrence: IT)
  Receive Date: 20250213
  Receipt Date: 20250213
  Transmission Date: 20250409
  Serious: Yes (Disabling)
  Sender: PFIZER
  Company Number: IT-GIMEMA-ALL3024-2025-002

PATIENT
  Age: 45 Year
  Sex: Female
  Weight: 67 kg

DRUGS (7)
  1. IDARUBICIN HYDROCHLORIDE [Suspect]
     Active Substance: IDARUBICIN HYDROCHLORIDE
     Indication: Acute lymphocytic leukaemia
     Dosage: 20.9 MG, 1X/DAY
     Route: 042
     Dates: start: 20241216, end: 20241216
  2. CYTARABINE [Suspect]
     Active Substance: CYTARABINE
     Indication: Acute lymphocytic leukaemia
     Dosage: 130.5 MG, 1X/DAY
     Route: 042
     Dates: start: 20241217, end: 20241220
  3. DEXAMETHASONE SODIUM PHOSPHATE [Suspect]
     Active Substance: DEXAMETHASONE SODIUM PHOSPHATE
     Indication: Acute lymphocytic leukaemia
     Dosage: 8 MG, ALTERNATE DAY
     Route: 042
     Dates: start: 20241216, end: 20241220
  4. DARATUMUMAB [Suspect]
     Active Substance: DARATUMUMAB
     Indication: Acute lymphocytic leukaemia
     Dosage: 1800 MG, 1X/DAY
     Route: 058
     Dates: start: 20241216, end: 20241216
  5. PEGASPARGASE [Suspect]
     Active Substance: PEGASPARGASE
     Indication: Acute lymphocytic leukaemia
     Dosage: 3480 IU, 1X/DAY
     Route: 042
     Dates: start: 20241223, end: 20241223
  6. MERCAPTOPURINE [Suspect]
     Active Substance: MERCAPTOPURINE
     Indication: Acute lymphocytic leukaemia
     Dosage: 100 MG, 1X/DAY
     Route: 048
     Dates: start: 20241216, end: 20241225
  7. CYCLOPHOSPHAMIDE [Suspect]
     Active Substance: CYCLOPHOSPHAMIDE
     Indication: Acute lymphocytic leukaemia
     Dosage: 1740 MG, 1X/DAY
     Route: 042
     Dates: start: 20241216, end: 20241216

REACTIONS (1)
  - Osteonecrosis [Not Recovered/Not Resolved]

NARRATIVE: CASE EVENT DATE: 20250120
